FAERS Safety Report 6191119-6 (Version None)
Quarter: 2009Q2

REPORT INFORMATION
  Report Type: 
  Country: None (occurrence: None)
  Receive Date: 20090513
  Receipt Date: 20090513
  Transmission Date: 20091009
  Serious: Yes (Other)
  Sender: FDA-Public Use
  Company Number: None

PATIENT
  Sex: Female
  Weight: 58.9676 kg

DRUGS (1)
  1. BONIVA [Suspect]
     Indication: ULCER
     Dosage: 150 MG MONTHLY
     Dates: start: 20051001, end: 20090301

REACTIONS (2)
  - GASTRIC ULCER [None]
  - HAEMATOCHEZIA [None]
